FAERS Safety Report 8019461-4 (Version None)
Quarter: 2012Q1

REPORT INFORMATION
  Report Type: 
  Country: None (occurrence: None)
  Receive Date: 20120103
  Receipt Date: 20111228
  Transmission Date: 20120608
  Serious: Yes (Death, Hospitalization, Other)
  Sender: FDA-Public Use
  Company Number: PHEH2011US02032

PATIENT
  Sex: Male
  Weight: 60.771 kg

DRUGS (9)
  1. ANTIEMETICS [Concomitant]
  2. EXJADE [Suspect]
     Dosage: 1250 MG, DAILY DISSOLVING IN 7 OUNCES OF WATER OR JUICE.
     Route: 048
     Dates: start: 20091001
  3. EXJADE [Suspect]
     Dosage: 500 MG, DAILY
     Route: 048
  4. ZOSYN [Concomitant]
  5. VANCOMYCIN [Concomitant]
  6. EXJADE [Suspect]
     Indication: IRON OVERLOAD
     Dosage: 1250 MG, DAILY
     Route: 048
     Dates: start: 20090401
  7. MULTI-VITAMINS [Concomitant]
     Dosage: 1 DF, DAILY
     Route: 048
  8. METHADONE HCL [Concomitant]
     Dosage: 10 G, Q6H, PRN
     Route: 048
  9. RIFAMPIN [Concomitant]

REACTIONS (38)
  - LEUKOCYTOSIS [None]
  - DEVICE RELATED INFECTION [None]
  - MUSCULOSKELETAL DISCOMFORT [None]
  - EMBOLIC CEREBRAL INFARCTION [None]
  - SICKLE CELL ANAEMIA WITH CRISIS [None]
  - MENTAL DISORDER [None]
  - JOINT SWELLING [None]
  - OCULAR ICTERUS [None]
  - HAEMORRHAGE INTRACRANIAL [None]
  - CHILLS [None]
  - COOMBS TEST POSITIVE [None]
  - PSEUDOMONAL BACTERAEMIA [None]
  - SEPTIC SHOCK [None]
  - CEREBRAL ARTERY EMBOLISM [None]
  - NAUSEA [None]
  - PYREXIA [None]
  - BACTERIAL INFECTION [None]
  - ATTENTION DEFICIT/HYPERACTIVITY DISORDER [None]
  - HEPATOMEGALY [None]
  - ABDOMINAL TENDERNESS [None]
  - DISSEMINATED INTRAVASCULAR COAGULATION [None]
  - FATIGUE [None]
  - SEPSIS [None]
  - ENDOCARDITIS [None]
  - PAIN [None]
  - RENAL FAILURE ACUTE [None]
  - OSTEOMYELITIS [None]
  - ARTHRALGIA [None]
  - HAEMORRHAGIC TRANSFORMATION STROKE [None]
  - HYPOTENSION [None]
  - AORTIC VALVE DISEASE [None]
  - ANAEMIA [None]
  - CEREBRAL HAEMORRHAGE [None]
  - TOOTH LOSS [None]
  - DIARRHOEA [None]
  - MALAISE [None]
  - THROMBOCYTOPENIA [None]
  - EMOTIONAL DISTRESS [None]
